FAERS Safety Report 10137487 (Version 1)
Quarter: 2014Q2

REPORT INFORMATION
  Report Type: Spontaneous
  Country: US (occurrence: None)
  Receive Date: 20140428
  Receipt Date: 20140428
  Transmission Date: 20141212
  Serious: Yes (Other)
  Sender: FDA-Public Use
  Company Number: None

PATIENT
  Age: 25 Year
  Sex: Male
  Weight: 108.86 kg

DRUGS (1)
  1. ENBREL [Suspect]
     Indication: PSORIASIS
     Dosage: SUBCURANEOUS 057, 50, INJECTABLE, QWK

REACTIONS (5)
  - Urinary tract infection [None]
  - Infection [None]
  - No therapeutic response [None]
  - Condition aggravated [None]
  - Sneezing [None]
